FAERS Safety Report 5861881-8 (Version None)
Quarter: 2008Q3

REPORT INFORMATION
  Report Type: 
  Country: None (occurrence: None)
  Receive Date: 20080827
  Receipt Date: 20080718
  Transmission Date: 20090109
  Serious: No
  Sender: FDA-Public Use
  Company Number: US-ABBOTT-08P-163-0463973-00

PATIENT
  Sex: Male
  Weight: 86.714 kg

DRUGS (5)
  1. NIASPAN [Suspect]
     Indication: DIABETES MELLITUS
     Route: 048
     Dates: start: 20080717
  2. ROSUVASTATIN [Concomitant]
     Indication: BLOOD CHOLESTEROL
     Dosage: IN THE MORNING
     Route: 048
     Dates: start: 20080507
  3. ROSUVASTATIN [Concomitant]
     Indication: LOW DENSITY LIPOPROTEIN
  4. RAMPIRI [Concomitant]
     Indication: BLOOD CHOLESTEROL
     Route: 048
     Dates: start: 20080507
  5. RAMPIRI [Concomitant]
     Indication: LOW DENSITY LIPOPROTEIN

REACTIONS (3)
  - ACCIDENTAL OVERDOSE [None]
  - FEELING HOT [None]
  - FLUSHING [None]
